FAERS Safety Report 7397817-0 (Version None)
Quarter: 2011Q2

REPORT INFORMATION
  Report Type: 
  Country: None (occurrence: None)
  Receive Date: 20110406
  Receipt Date: 20110329
  Transmission Date: 20111010
  Serious: Yes (Hospitalization)
  Sender: FDA-Public Use
  Company Number: GB-PFIZER INC-GB-WYE-G05174509

PATIENT
  Age: 57 Year
  Sex: Female

DRUGS (6)
  1. PROCYCLIDINE [Concomitant]
     Dosage: UNK
  2. SENNA [Concomitant]
     Dosage: UNK
  3. SIMVASTATIN [Concomitant]
     Dosage: UNK
  4. ZUCLOPENTHIXOL DECANOATE [Concomitant]
     Dosage: UNK
  5. EFFEXOR [Suspect]
     Indication: DEPRESSION
     Dosage: 300 MG, 1X/DAY
     Route: 048
     Dates: start: 20080101, end: 20091001
  6. CLOZARIL [Suspect]
     Indication: SCHIZOPHRENIA
     Dosage: 400 MG, 1X/DAY
     Route: 048
     Dates: start: 20031112

REACTIONS (5)
  - ORTHOSTATIC HYPOTENSION [None]
  - ANTIPSYCHOTIC DRUG LEVEL INCREASED [None]
  - CONSTIPATION [None]
  - DYSURIA [None]
  - FATIGUE [None]
